FAERS Safety Report 19468084 (Version 3)
Quarter: 2021Q3

REPORT INFORMATION
  Report Type: Spontaneous
  Country: MX (occurrence: MX)
  Receive Date: 20210628
  Receipt Date: 20210712
  Transmission Date: 20211014
  Serious: No
  Sender: FDA-Public Use
  Company Number: MX-UCBSA-2021030710

PATIENT
  Age: 40 Year
  Weight: 70 kg

DRUGS (1)
  1. NUBRENZA [Suspect]
     Active Substance: ROTIGOTINE
     Indication: PRODUCT USED FOR UNKNOWN INDICATION
     Dosage: 8 MG

REACTIONS (4)
  - Hypersomnia [Unknown]
  - Device adhesion issue [Unknown]
  - Hyperhidrosis [Unknown]
  - Drug ineffective [Unknown]
